FAERS Safety Report 8501398-5 (Version None)
Quarter: 2012Q3

REPORT INFORMATION
  Report Type: 
  Country: None (occurrence: None)
  Receive Date: 20120710
  Receipt Date: 20120703
  Transmission Date: 20120928
  Serious: Yes (Life-Threatening, Hospitalization, Other)
  Sender: FDA-Public Use
  Company Number: BG-JNJFOC-20120702509

PATIENT
  Age: 75 Year
  Sex: Male

DRUGS (5)
  1. CARVEDILOL [Concomitant]
  2. HEPARIN [Suspect]
     Indication: PULMONARY EMBOLISM
  3. ASPIRIN [Suspect]
     Indication: PRODUCT USED FOR UNKNOWN INDICATION
  4. XARELTO [Suspect]
     Indication: HIP ARTHROPLASTY
     Route: 048
     Dates: start: 20120401, end: 20120601
  5. XARELTO [Suspect]
     Indication: THROMBOSIS PROPHYLAXIS
     Route: 048
     Dates: start: 20120401, end: 20120601

REACTIONS (1)
  - PULMONARY EMBOLISM [None]
